FAERS Safety Report 16891570 (Version 3)
Quarter: 2019Q4

REPORT INFORMATION
  Report Type: Spontaneous
  Country: GR (occurrence: GR)
  Receive Date: 20191007
  Receipt Date: 20191210
  Transmission Date: 20200122
  Serious: Yes (Other)
  Sender: FDA-Public Use
  Company Number: GR-MYLANLABS-2019M1092422

PATIENT
  Age: 70 Year
  Sex: Female

DRUGS (3)
  1. ANAGRELIDE MYLAN [Suspect]
     Active Substance: ANAGRELIDE HYDROCHLORIDE MONOHYDRATE
     Indication: THROMBOCYTOSIS
     Dosage: UNK
     Dates: start: 20190908
  2. HYDROXYUREA. [Suspect]
     Active Substance: HYDROXYUREA
     Indication: PRODUCT USED FOR UNKNOWN INDICATION
     Dosage: UNK
  3. ASPIRIN                            /00002701/ [Concomitant]
     Active Substance: ASPIRIN
     Dosage: UNK

REACTIONS (3)
  - Alopecia [Recovering/Resolving]
  - Nodule [Unknown]
  - Pruritus [Recovered/Resolved]

NARRATIVE: CASE EVENT DATE: 201909
